FAERS Safety Report 4758957-5 (Version None)
Quarter: 2005Q3

REPORT INFORMATION
  Report Type: 
  Country: None (occurrence: None)
  Receive Date: 20050901
  Receipt Date: 20050825
  Transmission Date: 20060218
  Serious: Yes (Other)
  Sender: FDA-Public Use
  Company Number: GB-BRACCO-BRO-009067

PATIENT
  Sex: Female

DRUGS (1)
  1. GADOTERIDOL [Suspect]
     Route: 042
     Dates: start: 20050419, end: 20050419

REACTIONS (5)
  - EYE INFLAMMATION [None]
  - EYE IRRITATION [None]
  - EYE SWELLING [None]
  - EYELID OEDEMA [None]
  - OCULAR HYPERAEMIA [None]
